FAERS Safety Report 12846326 (Version 2)
Quarter: 2016Q4

REPORT INFORMATION
  Report Type: Report from Study
  Country: US (occurrence: US)
  Receive Date: 20161014
  Receipt Date: 20161123
  Transmission Date: 20170207
  Serious: No
  Sender: FDA-Public Use
  Company Number: PHEH2016US026448

PATIENT
  Age: 61 Year
  Sex: Female

DRUGS (1)
  1. COSENTYX [Suspect]
     Active Substance: SECUKINUMAB
     Indication: PSORIASIS
     Dosage: 300 MG, QMO
     Route: 058
     Dates: start: 20151031

REACTIONS (6)
  - Psoriasis [Unknown]
  - Incorrect dose administered by device [Unknown]
  - Injection site reaction [Unknown]
  - Device malfunction [Unknown]
  - Accidental exposure to product [Unknown]
  - Urticaria [Unknown]

NARRATIVE: CASE EVENT DATE: 20161008
